FAERS Safety Report 5781265-0 (Version None)
Quarter: 2008Q2

REPORT INFORMATION
  Report Type: 
  Country: None (occurrence: None)
  Receive Date: 20080623
  Receipt Date: 20080610
  Transmission Date: 20081010
  Serious: Yes (Disabling)
  Sender: FDA-Public Use
  Company Number: ES-JNJFOC-20070402845

PATIENT
  Sex: Male
  Weight: 65.5 kg

DRUGS (1)
  1. INFLIXIMAB [Suspect]
     Indication: PSORIASIS
     Dosage: 6TH INFUSION=2400 MG
     Route: 042

REACTIONS (3)
  - DEMYELINATION [None]
  - PARAESTHESIA [None]
  - POLYNEUROPATHY [None]
